FAERS Safety Report 23780035 (Version 1)
Quarter: 2024Q2

REPORT INFORMATION
  Report Type: Other
  Country: US (occurrence: US)
  Receive Date: 20240424
  Receipt Date: 20240424
  Transmission Date: 20240715
  Serious: Yes (Other)
  Sender: FDA-Public Use
  Company Number: US-Appco Pharma LLC-2155967

PATIENT
  Age: 43 Year
  Sex: Male
  Weight: 191 kg

DRUGS (6)
  1. CHLORTHALIDONE [Suspect]
     Active Substance: CHLORTHALIDONE
     Indication: Hypertension
     Route: 065
  2. LOSARTAN [Suspect]
     Active Substance: LOSARTAN
     Route: 065
  3. MYCOPHENOLATE MOFETIL [Concomitant]
     Active Substance: MYCOPHENOLATE MOFETIL
     Route: 065
  4. TACROLIMUS [Concomitant]
     Active Substance: TACROLIMUS
     Route: 065
  5. NIRMATRELVIR\RITONAVIR [Concomitant]
     Active Substance: NIRMATRELVIR\RITONAVIR
     Route: 065
  6. NIFEDIPINE [Interacting]
     Active Substance: NIFEDIPINE
     Route: 065

REACTIONS (1)
  - Acute kidney injury [Unknown]
